FAERS Safety Report 5761026-9 (Version None)
Quarter: 2008Q2

REPORT INFORMATION
  Report Type: 
  Country: None (occurrence: None)
  Receive Date: 20080606
  Receipt Date: 20080522
  Transmission Date: 20081010
  Serious: Yes (Hospitalization)
  Sender: FDA-Public Use
  Company Number: GB-AVENTIS-200815204GDDC

PATIENT
  Age: 61 Year
  Sex: Male

DRUGS (10)
  1. GLYBURIDE [Suspect]
  2. METFORMIN HCL [Suspect]
  3. BEVACIZUMAB [Suspect]
     Indication: NON-SMALL CELL LUNG CANCER
     Dosage: DOSE: 15MG/KG
     Route: 042
  4. DIAZEPAM [Suspect]
  5. LIPITOR [Suspect]
  6. DILAUDID [Suspect]
  7. DILAUDID [Suspect]
  8. MONOCOR [Suspect]
  9. HYSRON [Suspect]
  10. FLURAZEPAM [Suspect]

REACTIONS (3)
  - CONFUSIONAL STATE [None]
  - DEHYDRATION [None]
  - HYPOTENSION [None]
